FAERS Safety Report 15653361 (Version 3)
Quarter: 2019Q1

REPORT INFORMATION
  Report Type: Report from Study
  Country: None (occurrence: US)
  Receive Date: 20181124
  Receipt Date: 20190319
  Transmission Date: 20190417
  Serious: Yes (Hospitalization, Other)
  Sender: FDA-Public Use
  Company Number: US-ABBVIE-18K-163-2562444-00

PATIENT
  Age: 45 Year
  Sex: Female

DRUGS (1)
  1. HUMIRA [Suspect]
     Active Substance: ADALIMUMAB
     Indication: RHEUMATOID ARTHRITIS
     Route: 058

REACTIONS (10)
  - Clostridium difficile infection [Unknown]
  - Foot deformity [Unknown]
  - Intestinal obstruction [Unknown]
  - Knee arthroplasty [Unknown]
  - Cough [Unknown]
  - Burning sensation [Unknown]
  - Arthritis [Unknown]
  - Knee arthroplasty [Unknown]
  - Respiratory tract congestion [Unknown]
  - Pain in extremity [Unknown]

NARRATIVE: CASE EVENT DATE: 2015
